FAERS Safety Report 13597564 (Version 1)
Quarter: 2017Q2

REPORT INFORMATION
  Report Type: Spontaneous
  Country: HR (occurrence: HR)
  Receive Date: 20170531
  Receipt Date: 20170531
  Transmission Date: 20170830
  Serious: Yes (Other)
  Sender: FDA-Public Use
  Company Number: PHHY2017HR073578

PATIENT
  Age: 63 Year
  Sex: Female

DRUGS (1)
  1. AMOXICILLIN. [Suspect]
     Active Substance: AMOXICILLIN
     Indication: PULPITIS DENTAL
     Dosage: 1000 MG, QD
     Route: 048
     Dates: start: 20170505, end: 20170505

REACTIONS (8)
  - Throat tightness [Recovered/Resolved]
  - Rash pruritic [Recovered/Resolved]
  - Generalised erythema [Recovered/Resolved]
  - Nausea [Recovered/Resolved]
  - Vomiting [Recovered/Resolved]
  - Diarrhoea [Recovered/Resolved]
  - Hypersensitivity [Recovered/Resolved]
  - Asthenia [Recovered/Resolved]

NARRATIVE: CASE EVENT DATE: 20170505
